FAERS Safety Report 7300419-5 (Version None)
Quarter: 2011Q1

REPORT INFORMATION
  Report Type: 
  Country: None (occurrence: None)
  Receive Date: 20110217
  Receipt Date: 20110208
  Transmission Date: 20110831
  Serious: Yes (Hospitalization, Other)
  Sender: FDA-Public Use
  Company Number: PHHO2010FR19677

PATIENT
  Sex: Male
  Weight: 84 kg

DRUGS (10)
  1. CARDENSIEL [Concomitant]
  2. NEORAL [Suspect]
     Indication: CARDIAC FAILURE
     Dosage: UNK
     Route: 048
     Dates: start: 20070108
  3. MYCOPHENOLATE MOFETIL [Suspect]
     Indication: HEART TRANSPLANT
     Dosage: 2000 MG, UNK
     Dates: start: 20101221
  4. SOLUPRED [Concomitant]
  5. CRESTOR [Concomitant]
  6. KEPPRA [Concomitant]
  7. EVEROLIMUS [Suspect]
     Indication: HEART TRANSPLANT
     Dosage: 0.75 MG, BID
     Route: 048
     Dates: start: 20101109, end: 20101218
  8. ASPIRIN [Concomitant]
  9. COVERAM [Concomitant]
  10. NEXIUM [Concomitant]

REACTIONS (4)
  - LIP OEDEMA [None]
  - TONGUE OEDEMA [None]
  - ANGIOEDEMA [None]
  - FACE OEDEMA [None]
